FAERS Safety Report 7654813-3 (Version None)
Quarter: 2011Q3

REPORT INFORMATION
  Report Type: 
  Country: None (occurrence: None)
  Receive Date: 20110803
  Receipt Date: 20110803
  Transmission Date: 20111222
  Serious: Yes (Life-Threatening, Disabling)
  Sender: FDA-Public Use
  Company Number: None

PATIENT
  Age: 80 Year
  Sex: Male
  Weight: 75.7507 kg

DRUGS (1)
  1. ALBUTEROL [Suspect]
     Indication: CHRONIC OBSTRUCTIVE PULMONARY DISEASE
     Dosage: 3ML. 4 TIMES DAY O54; (1) VIAL 3ML. 4 TIMES DAY NEBULIZER
     Dates: start: 20101014, end: 20101030

REACTIONS (3)
  - TREMOR [None]
  - ACTIVITIES OF DAILY LIVING IMPAIRED [None]
  - HYPOPHAGIA [None]
